FAERS Safety Report 9631783 (Version 1)
Quarter: 2013Q4

REPORT INFORMATION
  Report Type: Spontaneous
  Country: PT (occurrence: None)
  Receive Date: 20131015
  Receipt Date: 20131015
  Transmission Date: 20140711
  Serious: Yes (Hospitalization)
  Sender: FDA-Public Use
  Company Number: FK201304509

PATIENT
  Age: 14 Year
  Sex: Male
  Weight: 44 kg

DRUGS (1)
  1. CEFTRIAXONA [Suspect]
     Indication: PERITONSILLAR ABSCESS
     Dosage: 75 MG/KG, 1 IN ONCE, INTRAVENOUS BOLUS
     Route: 040
     Dates: start: 20130915, end: 20130915

REACTIONS (5)
  - Anaphylactic reaction [None]
  - Nasal obstruction [None]
  - Nasal discomfort [None]
  - Pruritus generalised [None]
  - Rash pruritic [None]
